FAERS Safety Report 23262756 (Version 1)
Quarter: 2023Q4

REPORT INFORMATION
  Report Type: Spontaneous
  Country: US (occurrence: US)
  Receive Date: 20231205
  Receipt Date: 20231205
  Transmission Date: 20240110
  Serious: Yes (Other)
  Sender: FDA-Public Use
  Company Number: US-BEH-2023166009

PATIENT
  Age: 55 Year
  Sex: Male

DRUGS (8)
  1. IDELVION [Suspect]
     Active Substance: COAGULATION FACTOR IX RECOMBINANT HUMAN
     Indication: Factor IX deficiency
     Dosage: 3572 INTERNATIONAL UNIT, QW
     Route: 042
     Dates: start: 202206
  2. IDELVION [Suspect]
     Active Substance: COAGULATION FACTOR IX RECOMBINANT HUMAN
     Indication: Factor IX deficiency
     Dosage: 3572 INTERNATIONAL UNIT, QW
     Route: 042
     Dates: start: 202206
  3. IDELVION [Suspect]
     Active Substance: COAGULATION FACTOR IX RECOMBINANT HUMAN
     Indication: Haemorrhage
     Dosage: 3572 INTERNATIONAL UNIT, PRN  EVERY 48 TO 72  FOR JOINT/SOFT TISSUE BLEED
     Route: 042
     Dates: start: 202206
  4. IDELVION [Suspect]
     Active Substance: COAGULATION FACTOR IX RECOMBINANT HUMAN
     Indication: Haemorrhage
     Dosage: 3572 INTERNATIONAL UNIT, PRN  EVERY 48 TO 72  FOR JOINT/SOFT TISSUE BLEED
     Route: 042
     Dates: start: 202206
  5. IDELVION [Suspect]
     Active Substance: COAGULATION FACTOR IX RECOMBINANT HUMAN
     Dosage: 8930 INTERNATIONAL UNIT, PRN EVERY 48 TO 72  FOR EMERGENCY BLEED
     Route: 042
     Dates: start: 202206
  6. IDELVION [Suspect]
     Active Substance: COAGULATION FACTOR IX RECOMBINANT HUMAN
     Dosage: 8930 INTERNATIONAL UNIT, PRN EVERY 48 TO 72  FOR EMERGENCY BLEED
     Route: 042
     Dates: start: 202206
  7. IDELVION [Suspect]
     Active Substance: COAGULATION FACTOR IX RECOMBINANT HUMAN
     Dosage: 4 DOSAGE FORM
     Route: 065
     Dates: start: 20231104, end: 20231106
  8. IDELVION [Suspect]
     Active Substance: COAGULATION FACTOR IX RECOMBINANT HUMAN
     Dosage: 4 DOSAGE FORM
     Route: 065
     Dates: start: 20231104, end: 20231106

REACTIONS (1)
  - Haemarthrosis [Recovered/Resolved]

NARRATIVE: CASE EVENT DATE: 20231104
